FAERS Safety Report 9634042 (Version 4)
Quarter: 2013Q4

REPORT INFORMATION
  Report Type: Spontaneous
  Country: US (occurrence: US)
  Receive Date: 20131021
  Receipt Date: 20131127
  Transmission Date: 20140711
  Serious: No
  Sender: FDA-Public Use
  Company Number: US-009507513-1310USA003879

PATIENT
  Age: 66 Year
  Sex: Male
  Weight: 70.3 kg

DRUGS (4)
  1. TICE BCG LIVE [Suspect]
     Indication: BLADDER CANCER
     Dosage: UNK
     Dates: start: 20130826, end: 20130826
  2. TICE BCG LIVE [Suspect]
     Dosage: UNK
     Dates: start: 20130903, end: 20130903
  3. TICE BCG LIVE [Suspect]
     Dosage: UNK
     Dates: start: 20130909, end: 20130909
  4. TICE BCG LIVE [Suspect]
     Dosage: UNK
     Dates: end: 20130930

REACTIONS (15)
  - Haemorrhage urinary tract [Recovered/Resolved]
  - Haematuria [Not Recovered/Not Resolved]
  - Pyrexia [Not Recovered/Not Resolved]
  - Blood urine present [Not Recovered/Not Resolved]
  - Emotional disorder [Unknown]
  - Crying [Unknown]
  - Influenza like illness [Unknown]
  - Bladder irritation [Not Recovered/Not Resolved]
  - Arthralgia [Not Recovered/Not Resolved]
  - Chromaturia [Not Recovered/Not Resolved]
  - Mycobacterium test positive [Not Recovered/Not Resolved]
  - Malaise [Not Recovered/Not Resolved]
  - Vomiting [Unknown]
  - Nausea [Unknown]
  - Mycobacterium tuberculosis complex test positive [Not Recovered/Not Resolved]
